FAERS Safety Report 8105781-1 (Version None)
Quarter: 2012Q1

REPORT INFORMATION
  Report Type: 
  Country: None (occurrence: None)
  Receive Date: 20120201
  Receipt Date: 20120125
  Transmission Date: 20120608
  Serious: Yes (Other)
  Sender: FDA-Public Use
  Company Number: US-ASTRAZENECA-2012SE05591

PATIENT
  Age: 76 Year
  Sex: Female

DRUGS (2)
  1. TOPROL-XL [Suspect]
     Route: 048
  2. METFORMIN HCL [Suspect]
     Route: 048

REACTIONS (5)
  - DIABETES MELLITUS [None]
  - PRURITUS [None]
  - PARAESTHESIA [None]
  - ADVERSE EVENT [None]
  - UPPER LIMB FRACTURE [None]
